FAERS Safety Report 5340385-5 (Version None)
Quarter: 2007Q2

REPORT INFORMATION
  Report Type: 
  Country: None (occurrence: None)
  Receive Date: 20070405
  Receipt Date: 20061226
  Transmission Date: 20071010
  Serious: No
  Sender: FDA-Public Use
  Company Number: US200612004370

PATIENT
  Sex: Male

DRUGS (3)
  1. CYMBALTA [Suspect]
     Dosage: SEE IMAGE
  2. AMLODIPINE BESYLATE [Concomitant]
  3. BENAZEPRIL HYDROCHLORIDE (BENAZEPRIL HYDROCHLORIDE) [Concomitant]

REACTIONS (2)
  - DRUG INEFFECTIVE [None]
  - MEDICATION ERROR [None]
